FAERS Safety Report 18822557 (Version 1)
Quarter: 2021Q1

REPORT INFORMATION
  Report Type: Spontaneous
  Country: DE (occurrence: DE)
  Receive Date: 20210202
  Receipt Date: 20210202
  Transmission Date: 20210419
  Serious: Yes (Other)
  Sender: FDA-Public Use
  Company Number: DE-PFIZER INC-2021073673

PATIENT

DRUGS (1)
  1. CYTOTEC [Suspect]
     Active Substance: MISOPROSTOL
     Indication: LABOUR INDUCTION
     Dosage: 200 UG IN QUARTERS
     Route: 064
     Dates: start: 20210119, end: 20210119

REACTIONS (3)
  - Foetal exposure during delivery [Unknown]
  - Conjunctival haemorrhage [Unknown]
  - Screaming [Unknown]

NARRATIVE: CASE EVENT DATE: 20210119
